FAERS Safety Report 6625000-2 (Version None)
Quarter: 2010Q1

REPORT INFORMATION
  Report Type: 
  Country: None (occurrence: None)
  Receive Date: 20100310
  Receipt Date: 20090922
  Transmission Date: 20100710
  Serious: No
  Sender: FDA-Public Use
  Company Number: US-BIOGENIDEC-2009BI030343

PATIENT
  Sex: Female

DRUGS (3)
  1. AVONEX [Suspect]
     Indication: MULTIPLE SCLEROSIS
     Route: 030
     Dates: start: 19960101, end: 20030101
  2. AVONEX [Suspect]
     Route: 030
     Dates: start: 20030101
  3. TYLENOL-500 [Concomitant]
     Indication: PREMEDICATION

REACTIONS (11)
  - AMNESIA [None]
  - BALANCE DISORDER [None]
  - COGNITIVE DISORDER [None]
  - COORDINATION ABNORMAL [None]
  - DEPRESSION [None]
  - DIPLOPIA [None]
  - DISTURBANCE IN ATTENTION [None]
  - DIZZINESS [None]
  - INFLUENZA LIKE ILLNESS [None]
  - MUSCLE SPASTICITY [None]
  - SECONDARY PROGRESSIVE MULTIPLE SCLEROSIS [None]
